FAERS Safety Report 8001197-7 (Version None)
Quarter: 2011Q4

REPORT INFORMATION
  Report Type: 
  Country: None (occurrence: None)
  Receive Date: 20111219
  Receipt Date: 20111205
  Transmission Date: 20120403
  Serious: Yes (Hospitalization, Disabling)
  Sender: FDA-Public Use
  Company Number: 2011MA017222

PATIENT
  Sex: Male
  Weight: 129.2752 kg

DRUGS (25)
  1. FLOMAX [Concomitant]
  2. MAGNESIUM HYDROXIDE TAB [Concomitant]
  3. ONDANSETRON [Concomitant]
  4. ZOFRAN [Concomitant]
  5. ESTALOL [Concomitant]
  6. IBUPROFEN (ADVIL) [Concomitant]
  7. SALINE [Concomitant]
  8. CARBIDOPA AND LEVODOPA [Concomitant]
  9. GUAIFENESIN [Concomitant]
  10. ACETAMINOPHEN [Concomitant]
  11. ASPIRIN [Concomitant]
  12. DIGOXIN [Suspect]
     Indication: PRODUCT USED FOR UNKNOWN INDICATION
     Dosage: 0.25 MG;QD;PO
     Route: 048
     Dates: start: 20050921, end: 20060809
  13. DITROPAN [Concomitant]
  14. DEPAKOTE [Concomitant]
  15. ALTERNALGEL [Concomitant]
  16. AMBIEN [Concomitant]
  17. ENALAPRIL MALEATE [Concomitant]
  18. DOCUSATE SODIUM [Concomitant]
  19. ATIVAN [Concomitant]
  20. SINEMET [Concomitant]
  21. FLECAINIDE ACETATE [Concomitant]
  22. OXYBUTYNIN [Concomitant]
  23. DULCOLAX [Concomitant]
  24. DOPAMINE HCL [Concomitant]
  25. ATROPINE [Concomitant]

REACTIONS (53)
  - GAIT DISTURBANCE [None]
  - TREMOR [None]
  - MEMORY IMPAIRMENT [None]
  - DECREASED INTEREST [None]
  - SYNCOPE [None]
  - BUNDLE BRANCH BLOCK LEFT [None]
  - LEFT VENTRICULAR DYSFUNCTION [None]
  - BLOOD POTASSIUM DECREASED [None]
  - JOINT SWELLING [None]
  - BACK PAIN [None]
  - CEREBRAL ATROPHY [None]
  - BLOOD GLUCOSE DECREASED [None]
  - BLOOD GLUCOSE INCREASED [None]
  - BALANCE DISORDER [None]
  - FALL [None]
  - ASTHENIA [None]
  - DYSARTHRIA [None]
  - MUSCULOSKELETAL PAIN [None]
  - OEDEMA PERIPHERAL [None]
  - HEART RATE IRREGULAR [None]
  - PUPILLARY REFLEX IMPAIRED [None]
  - ELECTROCARDIOGRAM T WAVE INVERSION [None]
  - LEFT VENTRICULAR HYPERTROPHY [None]
  - AORTIC ARTERIOSCLEROSIS [None]
  - PERICARDIAL EFFUSION [None]
  - ATRIOVENTRICULAR BLOCK FIRST DEGREE [None]
  - MOBILITY DECREASED [None]
  - NOCTURIA [None]
  - ARTHRALGIA [None]
  - COUGH [None]
  - PUPILLARY DISORDER [None]
  - LOSS OF PROPRIOCEPTION [None]
  - DECREASED VIBRATORY SENSE [None]
  - GAIT APRAXIA [None]
  - JOINT STIFFNESS [None]
  - PROTRUSION TONGUE [None]
  - URINARY INCONTINENCE [None]
  - ERECTILE DYSFUNCTION [None]
  - CONVULSION [None]
  - ELECTROCARDIOGRAM ST SEGMENT DEPRESSION [None]
  - LEFT ATRIAL DILATATION [None]
  - BRADYCARDIA [None]
  - SNORING [None]
  - QRS AXIS ABNORMAL [None]
  - DYSSTASIA [None]
  - PROTEIN TOTAL INCREASED [None]
  - TRICUSPID VALVE INCOMPETENCE [None]
  - DISORIENTATION [None]
  - DYSKINESIA [None]
  - CEREBRAL SMALL VESSEL ISCHAEMIC DISEASE [None]
  - BLOOD PRESSURE DECREASED [None]
  - BLOOD UREA INCREASED [None]
  - OSTEOARTHRITIS [None]
